FAERS Safety Report 4908014-X (Version None)
Quarter: 2006Q1

REPORT INFORMATION
  Report Type: 
  Country: None (occurrence: None)
  Receive Date: 20060210
  Receipt Date: 20051213
  Transmission Date: 20060701
  Serious: Yes (Hospitalization)
  Sender: FDA-Public Use
  Company Number: JP-JPN-A20053069

PATIENT
  Age: 75 Year
  Sex: Female
  Weight: 55 kg

DRUGS (7)
  1. ZEFIX [Suspect]
     Indication: HEPATITIS B
     Dosage: 100MG PER DAY
     Route: 048
     Dates: start: 20051125, end: 20051213
  2. COTRIM [Suspect]
     Route: 048
  3. PREDONINE [Concomitant]
     Indication: NEPHROTIC SYNDROME
     Dosage: 10MG PER DAY
     Route: 048
  4. ALFAROL [Concomitant]
     Indication: OSTEOPOROSIS
     Dosage: .5MCG PER DAY
     Route: 048
  5. WARFARIN [Concomitant]
     Indication: NEPHROTIC SYNDROME
     Dosage: 1MG PER DAY
     Route: 048
  6. FLUTIDE DISKUS [Concomitant]
     Indication: ASTHMA
     Dosage: 800MCG PER DAY
     Route: 055
  7. SEREVENT [Concomitant]
     Indication: ASTHMA
     Dosage: 100MCG PER DAY
     Route: 055

REACTIONS (2)
  - NEUTROPENIA [None]
  - WHITE BLOOD CELL COUNT DECREASED [None]
